FAERS Safety Report 9382466 (Version 1)
Quarter: 2013Q3

REPORT INFORMATION
  Report Type: Spontaneous
  Country: US (occurrence: US)
  Receive Date: 20130703
  Receipt Date: 20130703
  Transmission Date: 20140515
  Serious: Yes (Other)
  Sender: FDA-Public Use
  Company Number: US-BAYER-2013-081632

PATIENT
  Age: 26 Year
  Sex: Female

DRUGS (2)
  1. YAZ [Suspect]
     Dosage: UNK
     Dates: start: 2002, end: 2007
  2. YASMIN [Suspect]
     Dosage: UNK
     Dates: start: 2002, end: 2007

REACTIONS (4)
  - Thrombosis [None]
  - Gallbladder disorder [None]
  - Injury [None]
  - Pain [None]
